FAERS Safety Report 4928476-1 (Version None)
Quarter: 2006Q1

REPORT INFORMATION
  Report Type: 
  Country: None (occurrence: None)
  Receive Date: 20060223
  Receipt Date: 20060126
  Transmission Date: 20060701
  Serious: Yes (Hospitalization)
  Sender: FDA-Public Use
  Company Number: 2005/IRL/005

PATIENT
  Age: 70 Year
  Sex: Female

DRUGS (4)
  1. CLAVAMEL (CLONMEL HEALTHCARE LTD. STRENGTH UNKNOWN) [Suspect]
  2. ASPIRIN [Concomitant]
  3. COD LIVER OIL [Concomitant]
  4. AUGMENTIN '250' [Suspect]

REACTIONS (6)
  - FAECES DISCOLOURED [None]
  - HEPATIC FUNCTION ABNORMAL [None]
  - HEPATITIS [None]
  - PRURITUS [None]
  - URINE ANALYSIS ABNORMAL [None]
  - WEIGHT DECREASED [None]
